FAERS Safety Report 6628754-4 (Version None)
Quarter: 2010Q1

REPORT INFORMATION
  Report Type: 
  Country: None (occurrence: None)
  Receive Date: 20100311
  Receipt Date: 20100308
  Transmission Date: 20100710
  Serious: Yes (Other)
  Sender: FDA-Public Use
  Company Number: CHPA2010US04069

PATIENT
  Age: 43 Year
  Sex: Female

DRUGS (2)
  1. PREVACID 24 HR [Suspect]
     Indication: ABDOMINAL PAIN UPPER
     Dosage: 15 MG, QD
     Route: 048
     Dates: start: 20100215
  2. PREVACID 24 HR [Suspect]
     Indication: MUSCULOSKELETAL PAIN

REACTIONS (6)
  - BLISTER [None]
  - OFF LABEL USE [None]
  - PRURITUS [None]
  - RASH ERYTHEMATOUS [None]
  - SCAR [None]
  - SKIN EXFOLIATION [None]
